FAERS Safety Report 22367638 (Version 3)
Quarter: 2023Q2

REPORT INFORMATION
  Report Type: Spontaneous
  Country: CA (occurrence: CA)
  Receive Date: 20230525
  Receipt Date: 20230607
  Transmission Date: 20230722
  Serious: Yes (Other)
  Sender: FDA-Public Use
  Company Number: CA-GLAXOSMITHKLINE-CA2023AMR071710

PATIENT

DRUGS (1)
  1. BENLYSTA [Suspect]
     Active Substance: BELIMUMAB
     Indication: Systemic lupus erythematosus
     Dosage: UNK

REACTIONS (23)
  - Mental impairment [Unknown]
  - Urinary tract infection [Unknown]
  - Diarrhoea [Recovered/Resolved]
  - Fatigue [Unknown]
  - Dermatitis [Unknown]
  - Inflammation [Unknown]
  - Paraesthesia [Unknown]
  - Thermal burn [Unknown]
  - Chromaturia [Unknown]
  - Back pain [Unknown]
  - Renal pain [Unknown]
  - Pain [Unknown]
  - Insomnia [Unknown]
  - Dyspnoea [Unknown]
  - Heart rate increased [Unknown]
  - Disturbance in attention [Unknown]
  - Negativism [Unknown]
  - Mood altered [Unknown]
  - Headache [Unknown]
  - Vision blurred [Unknown]
  - Infection [Unknown]
  - Oedema [Unknown]
  - Drug intolerance [Unknown]
